FAERS Safety Report 7102489-6 (Version None)
Quarter: 2010Q4

REPORT INFORMATION
  Report Type: 
  Country: None (occurrence: None)
  Receive Date: 20101115
  Receipt Date: 20101104
  Transmission Date: 20110411
  Serious: Yes (Other)
  Sender: FDA-Public Use
  Company Number: BR-ROCHE-739454

PATIENT
  Sex: Female
  Weight: 63 kg

DRUGS (6)
  1. TOCILIZUMAB [Suspect]
     Indication: RHEUMATOID ARTHRITIS
     Dosage: FORM: INFUSION
     Route: 065
     Dates: start: 20091008
  2. PREDSIM [Concomitant]
  3. CALCIUM [Concomitant]
  4. BONIVA [Concomitant]
  5. CONDROFLEX [Concomitant]
     Dosage: DOSE REPORTED: 1.5+1.2 MG
  6. EUTHYROX [Concomitant]

REACTIONS (3)
  - MALAISE [None]
  - OEDEMA PERIPHERAL [None]
  - PAIN IN EXTREMITY [None]
